FAERS Safety Report 6604500-5 (Version None)
Quarter: 2010Q1

REPORT INFORMATION
  Report Type: 
  Country: None (occurrence: None)
  Receive Date: 20100226
  Receipt Date: 20091102
  Transmission Date: 20100710
  Serious: No
  Sender: FDA-Public Use
  Company Number: A0814382A

PATIENT
  Sex: Male

DRUGS (3)
  1. LAMOTRIGINE [Suspect]
     Indication: BIPOLAR DISORDER
     Route: 048
  2. PAXIL [Concomitant]
  3. WELLBUTRIN [Concomitant]

REACTIONS (1)
  - ILL-DEFINED DISORDER [None]
